FAERS Safety Report 18841709 (Version 5)
Quarter: 2025Q1

REPORT INFORMATION
  Report Type: Report from Study
  Country: US (occurrence: US)
  Receive Date: 20210203
  Receipt Date: 20250308
  Transmission Date: 20250408
  Serious: Yes (Other)
  Sender: TAKEDA
  Company Number: US-TAKEDA-US201911220

PATIENT
  Age: 16 Year
  Sex: Female

DRUGS (4)
  1. HUMAN IMMUNOGLOBULIN G [Suspect]
     Active Substance: HUMAN IMMUNOGLOBULIN G
     Indication: Immunodeficiency common variable
     Dosage: 7.5 GRAM, 1/WEEK
  2. HUMAN IMMUNOGLOBULIN G [Suspect]
     Active Substance: HUMAN IMMUNOGLOBULIN G
     Indication: Primary immunodeficiency syndrome
  3. HUMAN IMMUNOGLOBULIN G [Suspect]
     Active Substance: HUMAN IMMUNOGLOBULIN G
     Dosage: 16 GRAM, Q2WEEKS
  4. HUMAN IMMUNOGLOBULIN G [Suspect]
     Active Substance: HUMAN IMMUNOGLOBULIN G
     Dosage: 8 GRAM, Q2WEEKS

REACTIONS (12)
  - Coeliac disease [Unknown]
  - Adnexal torsion [Recovering/Resolving]
  - Infusion site haemorrhage [Unknown]
  - Infusion site warmth [Unknown]
  - Infusion site erythema [Unknown]
  - COVID-19 [Unknown]
  - Infusion site vesicles [Unknown]
  - Illness [Unknown]
  - Infusion site inflammation [Unknown]
  - Sinusitis [Unknown]
  - Diarrhoea [Not Recovered/Not Resolved]
  - Postural orthostatic tachycardia syndrome [Unknown]

NARRATIVE: CASE EVENT DATE: 20190402
